FAERS Safety Report 9247791 (Version 2)
Quarter: 2013Q2

REPORT INFORMATION
  Report Type: Report from Study
  Country: DE (occurrence: DE)
  Receive Date: 20130423
  Receipt Date: 20130509
  Transmission Date: 20140414
  Serious: Yes (Death, Hospitalization)
  Sender: FDA-Public Use
  Company Number: DE-BRISTOL-MYERS SQUIBB COMPANY-15465925

PATIENT
  Age: 47 Year
  Sex: Male
  Weight: 50 kg

DRUGS (20)
  1. CISPLATIN [Suspect]
     Indication: NON-SMALL CELL LUNG CANCER
     Dosage: LAST DOSE ON 29NOV2010
     Route: 042
     Dates: start: 20101122, end: 20101214
  2. GEMCITABINE HCL [Suspect]
     Indication: NON-SMALL CELL LUNG CANCER
     Dosage: LAST DOSE ON 29NOV2010
     Route: 042
     Dates: start: 20101122, end: 20101213
  3. PANTOPRAZOLE [Concomitant]
     Indication: GASTROOESOPHAGEAL REFLUX DISEASE
     Dates: start: 20101104
  4. NALOXONE [Concomitant]
     Indication: CANCER PAIN
     Dates: start: 20101123
  5. LAXOBERAL [Concomitant]
     Indication: CONSTIPATION
     Dates: start: 20101214
  6. METAMIZOL [Concomitant]
     Dates: start: 20101104, end: 20110118
  7. METOCLOPRAMIDE [Concomitant]
     Indication: GASTROOESOPHAGEAL REFLUX DISEASE
  8. ACC [Concomitant]
     Dates: start: 20101112, end: 20101212
  9. MULTIBIONTA [Concomitant]
     Dates: start: 20101104
  10. MINERALS [Concomitant]
     Dates: start: 20101104
  11. BROMHEXINE [Concomitant]
     Dates: start: 20101104, end: 20101111
  12. CODEINE PHOSPHATE [Concomitant]
     Dosage: TRYASOL
     Dates: start: 20101104, end: 20101111
  13. AMOXICILLIN [Concomitant]
     Indication: GASTROOESOPHAGEAL REFLUX DISEASE
     Dates: start: 20101104, end: 20101111
  14. TAVANIC [Concomitant]
     Indication: PNEUMONIA
     Dates: start: 20101112, end: 20101122
  15. CLEXANE [Concomitant]
     Indication: THROMBOSIS
     Dates: start: 20011211, end: 20101213
  16. AREDIA [Concomitant]
     Dates: start: 20101115, end: 20101115
  17. OXYCODONE HCL [Concomitant]
     Indication: CANCER PAIN
  18. MAGNESIUM [Concomitant]
     Dates: start: 20101216, end: 20101220
  19. CALCIUM [Concomitant]
  20. IBUPROFEN [Concomitant]
     Dates: start: 20101216, end: 20101217

REACTIONS (5)
  - Malignant neoplasm progression [Fatal]
  - Osteolysis [Not Recovered/Not Resolved]
  - Neutropenia [Recovered/Resolved with Sequelae]
  - Stomatitis [Recovered/Resolved with Sequelae]
  - Anaemia [Recovered/Resolved with Sequelae]
